FAERS Safety Report 4937419-6 (Version None)
Quarter: 2006Q1

REPORT INFORMATION
  Report Type: 
  Country: None (occurrence: None)
  Receive Date: 20060306
  Receipt Date: 20060221
  Transmission Date: 20060701
  Serious: Yes (Other)
  Sender: FDA-Public Use
  Company Number: 2006026253

PATIENT
  Age: 14 Year
  Sex: Female
  Weight: 47.1741 kg

DRUGS (9)
  1. NEURONTIN [Suspect]
     Indication: BURNING SENSATION
     Dates: end: 20060201
  2. NEURONTIN [Suspect]
     Indication: PARAESTHESIA
     Dates: end: 20060201
  3. LYRICA [Suspect]
     Indication: COELIAC DISEASE
     Dosage: 75 MG (75 MG, 1 IN 1 D)
     Dates: start: 20060211
  4. CODEINE (CODEINE) [Concomitant]
  5. CENTRUM (MINERALS NOS, VITAMINS NOS) [Concomitant]
  6. B COMPLEX (NICOTINAMIDE, PYRIDOXINE HYDROCHLORIDE, RIBOFLAVIN, THIAMIN [Concomitant]
  7. VITAMIN D [Concomitant]
  8. STOOL SOFTENER (DOCUSATE SODIUM) [Concomitant]
  9. VICODIN [Concomitant]

REACTIONS (27)
  - ABASIA [None]
  - ASTHENIA [None]
  - BLOOD IMMUNOGLOBULIN A INCREASED [None]
  - BONE DISORDER [None]
  - COELIAC DISEASE [None]
  - CONDITION AGGRAVATED [None]
  - DISTURBANCE IN ATTENTION [None]
  - DIZZINESS [None]
  - DRY MOUTH [None]
  - EUPHORIC MOOD [None]
  - EYE DISORDER [None]
  - FEELING ABNORMAL [None]
  - FEELING COLD [None]
  - FEELING HOT [None]
  - GAIT DISTURBANCE [None]
  - HEART RATE INCREASED [None]
  - HYPERHIDROSIS [None]
  - INSOMNIA [None]
  - MUSCLE ATROPHY [None]
  - MUSCLE STRAIN [None]
  - NAUSEA [None]
  - NERVE INJURY [None]
  - OEDEMA PERIPHERAL [None]
  - PAIN [None]
  - TREMOR [None]
  - ULCER [None]
  - VITAMIN D DEFICIENCY [None]
